FAERS Safety Report 19878493 (Version 2)
Quarter: 2021Q3

REPORT INFORMATION
  Report Type: Report from Study
  Country: US (occurrence: US)
  Receive Date: 20210923
  Receipt Date: 20210923
  Transmission Date: 20211014
  Serious: No
  Sender: FDA-Public Use
  Company Number: NVSC2021US214558

PATIENT
  Age: 53 Year
  Sex: Female

DRUGS (1)
  1. GLATOPA [Suspect]
     Active Substance: GLATIRAMER ACETATE
     Indication: MULTIPLE SCLEROSIS
     Dosage: 40 MG, TID
     Route: 058

REACTIONS (7)
  - Pruritus [Unknown]
  - Injection site reaction [Unknown]
  - Adverse reaction [Unknown]
  - Injection site erythema [Unknown]
  - Condition aggravated [Unknown]
  - Burning sensation [Unknown]
  - Swelling [Unknown]

NARRATIVE: CASE EVENT DATE: 20210915
